FAERS Safety Report 11350535 (Version 2)
Quarter: 2016Q1

REPORT INFORMATION
  Report Type: Spontaneous
  Country: PT (occurrence: PT)
  Receive Date: 20150807
  Receipt Date: 20160216
  Transmission Date: 20160525
  Serious: Yes (Hospitalization)
  Sender: FDA-Public Use
  Company Number: PT-AUROBINDO-AUR-APL-2015-06660

PATIENT
  Age: 48 Year
  Sex: Female

DRUGS (4)
  1. PREGABALIN 300 MG [Suspect]
     Active Substance: PREGABALIN
     Indication: DEPRESSION
     Dosage: 300 MG, UNK
     Route: 065
  2. VENLAFAXINE [Suspect]
     Active Substance: VENLAFAXINE HYDROCHLORIDE
     Indication: DEPRESSION
     Dosage: 300 MG, UNK
     Route: 065
  3. VALPROIC ACID. [Suspect]
     Active Substance: VALPROIC ACID
     Indication: DEPRESSION
     Dosage: 1000 MG, UNK
     Route: 065
  4. CLONAZEPAM. [Suspect]
     Active Substance: CLONAZEPAM
     Indication: DEPRESSION
     Dosage: 0.5 MG, UNK
     Route: 065

REACTIONS (8)
  - Drug resistance [Unknown]
  - Drug withdrawal syndrome [Unknown]
  - Euphoric mood [Unknown]
  - Logorrhoea [Unknown]
  - Hypomania [Unknown]
  - Grandiosity [Unknown]
  - Depression [Unknown]
  - Drug ineffective [Unknown]
